FAERS Safety Report 15319171 (Version 4)
Quarter: 2018Q4

REPORT INFORMATION
  Report Type: Spontaneous
  Country: GB (occurrence: GB)
  Receive Date: 20180826
  Receipt Date: 20181031
  Transmission Date: 20190204
  Serious: No
  Sender: FDA-Public Use
  Company Number: IE-UCBSA-2018037427

PATIENT
  Age: 23 Year
  Sex: Male
  Weight: 100 kg

DRUGS (2)
  1. MIDAZOLAM [Concomitant]
     Active Substance: MIDAZOLAM HYDROCHLORIDE
     Dosage: 10 MG, ONCE DAILY (QD)
     Route: 058
     Dates: start: 20180210, end: 20180217
  2. BRIVIACT [Suspect]
     Active Substance: BRIVARACETAM
     Indication: SEIZURE
     Dosage: 300 MG, ONCE DAILY (QD)
     Route: 058
     Dates: start: 20180210, end: 20180217

REACTIONS (2)
  - Off label use [Unknown]
  - Overdose [Unknown]

NARRATIVE: CASE EVENT DATE: 20180210
